FAERS Safety Report 4306005-3 (Version None)
Quarter: 2004Q1

REPORT INFORMATION
  Report Type: 
  Country: None (occurrence: None)
  Receive Date: 20040225
  Receipt Date: 20040213
  Transmission Date: 20041129
  Serious: Yes (Other)
  Sender: FDA-Public Use
  Company Number: US_0402100543

PATIENT
  Age: 68 Year
  Sex: Male
  Weight: 96 kg

DRUGS (5)
  1. CIALIS [Suspect]
     Indication: ERECTILE DYSFUNCTION
     Dosage: 20 MG
     Dates: start: 20040124, end: 20040129
  2. TAMSULOSIN [Concomitant]
  3. FEXOFENADINE HCL [Concomitant]
  4. MELOXICAM [Concomitant]
  5. CAVERJECT [Concomitant]

REACTIONS (23)
  - ALANINE AMINOTRANSFERASE INCREASED [None]
  - ASPARTATE AMINOTRANSFERASE INCREASED [None]
  - BLOOD ALKALINE PHOSPHATASE INCREASED [None]
  - BLOOD BILIRUBIN INCREASED [None]
  - BLOOD URINE [None]
  - CHROMATURIA [None]
  - DRUG INEFFECTIVE [None]
  - FATIGUE [None]
  - FEELING ABNORMAL [None]
  - HAEMATOCRIT DECREASED [None]
  - HAEMOCHROMATOSIS [None]
  - HAEMOGLOBIN DECREASED [None]
  - HEADACHE [None]
  - JAUNDICE [None]
  - LYMPHOCYTE COUNT INCREASED [None]
  - MEAN CELL VOLUME INCREASED [None]
  - MEDICATION ERROR [None]
  - MYALGIA [None]
  - NAUSEA [None]
  - NEUTROPHIL COUNT INCREASED [None]
  - PYREXIA [None]
  - RED BLOOD CELL COUNT DECREASED [None]
  - VOMITING [None]
